FAERS Safety Report 21644513 (Version 1)
Quarter: 2022Q4

REPORT INFORMATION
  Report Type: Spontaneous
  Country: US (occurrence: US)
  Receive Date: 20221125
  Receipt Date: 20221125
  Transmission Date: 20230113
  Serious: Yes (Life-Threatening, Hospitalization, Other)
  Sender: FDA-Public Use
  Company Number: US-BRACCO-2022US05090

PATIENT
  Age: 46 Year
  Sex: Male

DRUGS (10)
  1. ISOVUE 300 [Suspect]
     Active Substance: IOPAMIDOL
     Indication: Angiogram cerebral
     Dosage: 147 ML, SINGLE
     Route: 042
     Dates: start: 20221117, end: 20221117
  2. BENADRYL [Concomitant]
     Active Substance: DIPHENHYDRAMINE HYDROCHLORIDE
     Indication: Premedication
     Dosage: UNK
     Dates: start: 20221111, end: 20221111
  3. METHYLPREDNISOLONE [Concomitant]
     Active Substance: METHYLPREDNISOLONE
     Indication: Premedication
     Dosage: UNK
     Dates: start: 20221111, end: 20221111
  4. FENTANYL [Concomitant]
     Active Substance: FENTANYL
  5. LIDOCAINE [Concomitant]
     Active Substance: LIDOCAINE
     Dosage: PATCH
  6. AMLODIPINE [Concomitant]
     Active Substance: AMLODIPINE BESYLATE
  7. ZOFRAN [Concomitant]
     Active Substance: ONDANSETRON HYDROCHLORIDE
  8. DECADRON [Concomitant]
     Active Substance: DEXAMETHASONE
  9. REGLAN [Concomitant]
     Active Substance: METOCLOPRAMIDE HYDROCHLORIDE
  10. FIORICET [Concomitant]
     Active Substance: ACETAMINOPHEN\BUTALBITAL\CAFFEINE

REACTIONS (2)
  - Cerebral vasoconstriction [Recovering/Resolving]
  - Migrainous infarction [Recovering/Resolving]

NARRATIVE: CASE EVENT DATE: 20221117
